FAERS Safety Report 12920277 (Version 2)
Quarter: 2016Q4

REPORT INFORMATION
  Report Type: Spontaneous
  Country: JP (occurrence: JP)
  Receive Date: 20161107
  Receipt Date: 20161116
  Transmission Date: 20170207
  Serious: Yes (Death)
  Sender: FDA-Public Use
  Company Number: JP-PFIZER INC-2016510798

PATIENT
  Age: 4 Decade
  Sex: Female

DRUGS (1)
  1. ATENOLOL. [Suspect]
     Active Substance: ATENOLOL
     Indication: SINUS TACHYCARDIA
     Dosage: 50 MG (TWO TABLETS OF ATENOLOL 25), DAILY
     Route: 048

REACTIONS (2)
  - Cardio-respiratory arrest [Fatal]
  - Overdose [Fatal]
